FAERS Safety Report 6755933-8 (Version None)
Quarter: 2010Q2

REPORT INFORMATION
  Report Type: 
  Country: None (occurrence: None)
  Receive Date: 20100603
  Receipt Date: 20100603
  Transmission Date: 20101027
  Serious: Yes (Other)
  Sender: FDA-Public Use
  Company Number: None

PATIENT
  Age: 62 Year
  Sex: Male
  Weight: 117.9352 kg

DRUGS (1)
  1. FLUOCINIDE, GEL, USP 0.05% 0.05% TEVA PHARMACEUTICALS USA [Suspect]
     Dosage: AS NEEDED AS NEEDED

REACTIONS (2)
  - APPLICATION SITE PAIN [None]
  - PRODUCT FORMULATION ISSUE [None]
